FAERS Safety Report 7886317-7 (Version None)
Quarter: 2011Q4

REPORT INFORMATION
  Report Type: 
  Country: None (occurrence: None)
  Receive Date: 20111102
  Receipt Date: 20110630
  Transmission Date: 20120403
  Serious: No
  Sender: FDA-Public Use
  Company Number: US-AMGEN-USASP2011034295

PATIENT
  Age: 30 Year
  Sex: Female

DRUGS (4)
  1. ENBREL [Suspect]
     Indication: RHEUMATOID ARTHRITIS
     Dosage: UNK
  2. PLAQUENIL [Suspect]
     Dosage: 400 MG, 1X/DAY
  3. ARAVA [Concomitant]
     Dosage: UNK
  4. SIMPONI [Concomitant]
     Indication: TUMOUR NECROSIS FACTOR RECEPTOR-ASSOCIATED PERIODIC SYNDROME
     Dosage: ONE INJECTION ONCE A MONTH

REACTIONS (8)
  - FATIGUE [None]
  - EMOTIONAL DISORDER [None]
  - HAIR TEXTURE ABNORMAL [None]
  - DRUG HYPERSENSITIVITY [None]
  - ABDOMINAL DISCOMFORT [None]
  - MYALGIA [None]
  - HAIR COLOUR CHANGES [None]
  - INJECTION SITE REACTION [None]
